FAERS Safety Report 10045133 (Version 1)
Quarter: 2014Q1

REPORT INFORMATION
  Report Type: Spontaneous
  Country: DK (occurrence: DK)
  Receive Date: 20140328
  Receipt Date: 20140328
  Transmission Date: 20141002
  Serious: Yes (Other)
  Sender: FDA-Public Use
  Company Number: PHHY2014DK037463

PATIENT
  Age: 81 Year
  Sex: Female

DRUGS (2)
  1. RASILEZ [Suspect]
     Dosage: 300 MG, UNK
  2. CENTYL K [Concomitant]
     Dosage: UNK UKN, UNK

REACTIONS (2)
  - Pulmonary oedema [Not Recovered/Not Resolved]
  - Dyspnoea [Not Recovered/Not Resolved]
